FAERS Safety Report 8758456 (Version 2)
Quarter: 2012Q4

REPORT INFORMATION
  Report Type: Report from Study
  Country: AU (occurrence: AU)
  Receive Date: 20120829
  Receipt Date: 20120907
  Transmission Date: 20130627
  Serious: Yes (Hospitalization, Other)
  Sender: FDA-Public Use
  Company Number: AU-INCYTE CORPORATION-2012IN001585

PATIENT

DRUGS (2)
  1. INC424 [Suspect]
     Indication: MYELOFIBROSIS
     Dosage: UNK
     Route: 065
     Dates: end: 20120710
  2. INC424 [Suspect]
     Dosage: 5 mg, bid

REACTIONS (2)
  - Platelet count decreased [Unknown]
  - Pneumonia respiratory syncytial viral [Unknown]
